FAERS Safety Report 9412331 (Version 1)
Quarter: 2013Q3

REPORT INFORMATION
  Report Type: Spontaneous
  Country: US (occurrence: US)
  Receive Date: 20130722
  Receipt Date: 20130722
  Transmission Date: 20140515
  Serious: No
  Sender: FDA-Public Use
  Company Number: US-BAUSCH-BL-2012-000433

PATIENT
  Age: 70 Year
  Sex: Female

DRUGS (2)
  1. BRIMONIDINE TARTRATE OPHTHALMIC SOLUTION 0.2% [Suspect]
     Indication: GLAUCOMA
     Dosage: 1 DROP; DAILY; OPHTHALMIC
     Route: 047
     Dates: start: 20120813
  2. DORZOLAMIDE HYDROCHLORIDE [Concomitant]
     Indication: GLAUCOMA
     Dosage: 1 DROP; TWICE A DAY; OPHTHALMIC
     Route: 047
     Dates: start: 2008

REACTIONS (2)
  - Scleral discolouration [Not Recovered/Not Resolved]
  - Miosis [Not Recovered/Not Resolved]
